FAERS Safety Report 12844373 (Version 1)
Quarter: 2016Q4

REPORT INFORMATION
  Report Type: Spontaneous
  Country: US (occurrence: US)
  Receive Date: 20161013
  Receipt Date: 20161013
  Transmission Date: 20170207
  Serious: No
  Sender: FDA-Public Use
  Company Number: US-ROCHE-1731772

PATIENT
  Age: 73 Year
  Sex: Female

DRUGS (9)
  1. ESBRIET [Suspect]
     Active Substance: PIRFENIDONE
     Indication: IDIOPATHIC PULMONARY FIBROSIS
     Route: 048
     Dates: start: 20150831
  2. DYAZIDE [Concomitant]
     Active Substance: HYDROCHLOROTHIAZIDE\TRIAMTERENE
     Dosage: 37.5-25
     Route: 065
  3. ZANTAC [Concomitant]
     Active Substance: RANITIDINE HYDROCHLORIDE
     Route: 065
  4. ESBRIET [Suspect]
     Active Substance: PIRFENIDONE
     Route: 048
     Dates: start: 20150512
  5. LUMIGAN [Concomitant]
     Active Substance: BIMATOPROST
  6. FOLIC ACID. [Concomitant]
     Active Substance: FOLIC ACID
     Route: 065
  7. ZOCOR [Concomitant]
     Active Substance: SIMVASTATIN
     Route: 065
  8. RANITIDINE. [Concomitant]
     Active Substance: RANITIDINE
  9. PREDNISONE. [Concomitant]
     Active Substance: PREDNISONE

REACTIONS (4)
  - Memory impairment [Unknown]
  - Drug dose omission [Unknown]
  - Nausea [Unknown]
  - Rash [Unknown]

NARRATIVE: CASE EVENT DATE: 201604
